FAERS Safety Report 26179039 (Version 1)
Quarter: 2025Q4

REPORT INFORMATION
  Report Type: Spontaneous
  Country: EU (occurrence: EU)
  Receive Date: 20251219
  Receipt Date: 20251219
  Transmission Date: 20260118
  Serious: Yes (Other)
  Sender: RANBAXY
  Company Number: EU-SUN PHARMACEUTICAL INDUSTRIES INC-2025R1-542393

PATIENT
  Age: 7 Year
  Sex: Female

DRUGS (2)
  1. FLUTICASONE [Suspect]
     Active Substance: FLUTICASONE
     Indication: Inhalation therapy
     Dosage: 50 MCG; ONE PUFF 2X/DAY
     Route: 065
  2. SALMETEROL [Concomitant]
     Active Substance: SALMETEROL
     Indication: Inhalation therapy
     Dosage: 25 MCG
     Route: 065

REACTIONS (1)
  - Growth retardation [Recovering/Resolving]
